FAERS Safety Report 7825007-3 (Version None)
Quarter: 2011Q4

REPORT INFORMATION
  Report Type: 
  Country: None (occurrence: None)
  Receive Date: 20111019
  Receipt Date: 20111012
  Transmission Date: 20120403
  Serious: Yes (Hospitalization)
  Sender: FDA-Public Use
  Company Number: US-MERCK-1108USA01135

PATIENT
  Age: 64 Year
  Sex: Female
  Weight: 77 kg

DRUGS (3)
  1. FOSAMAX [Suspect]
     Route: 048
     Dates: start: 19990916
  2. FOSAMAX [Suspect]
     Indication: OSTEOPOROSIS
     Route: 048
     Dates: start: 19980729, end: 19990915
  3. FOSAMAX [Suspect]
     Route: 048
     Dates: end: 20100601

REACTIONS (18)
  - FEMUR FRACTURE [None]
  - MUSCLE STRAIN [None]
  - WEIGHT INCREASED [None]
  - VITAMIN D DEFICIENCY [None]
  - FOOT FRACTURE [None]
  - PLANTAR FASCIITIS [None]
  - BACK PAIN [None]
  - HYPOACUSIS [None]
  - DENTAL CARIES [None]
  - INTERVERTEBRAL DISC DEGENERATION [None]
  - EXOSTOSIS [None]
  - CROHN'S DISEASE [None]
  - SPINAL COLUMN STENOSIS [None]
  - ILEITIS [None]
  - GOITRE [None]
  - HYPERTENSION [None]
  - HYPERPARATHYROIDISM SECONDARY [None]
  - DIVERTICULUM [None]
